FAERS Safety Report 5430062-4 (Version None)
Quarter: 2007Q3

REPORT INFORMATION
  Report Type: 
  Country: None (occurrence: None)
  Receive Date: 20070829
  Receipt Date: 20070820
  Transmission Date: 20080115
  Serious: Yes (Other)
  Sender: FDA-Public Use
  Company Number: US-PFIZER INC-2007069032

PATIENT
  Sex: Female
  Weight: 65.909 kg

DRUGS (2)
  1. TIKOSYN [Suspect]
     Indication: ARRHYTHMIA
  2. TIKOSYN [Suspect]
     Indication: CARDIAC FIBRILLATION

REACTIONS (1)
  - BREAST CANCER [None]
